FAERS Safety Report 5976448-0 (Version None)
Quarter: 2008Q4

REPORT INFORMATION
  Report Type: 
  Country: None (occurrence: None)
  Receive Date: 20081126
  Receipt Date: 20081117
  Transmission Date: 20090506
  Serious: Yes (Other)
  Sender: FDA-Public Use
  Company Number: US-1167558

PATIENT
  Age: 35 Year
  Sex: Male

DRUGS (4)
  1. NEVANAC [Suspect]
     Indication: PHOTOREFRACTIVE KERATECTOMY
     Dosage: (OU Q 2 HOURS X 3 DAYS OPTHALMIC), (OU Q 4 HOURS X 2 DAYS OPTHALMIC)
     Route: 047
  2. NEVANAC [Suspect]
     Indication: PHOTOREFRACTIVE KERATECTOMY
     Dosage: (OU Q 2 HOURS X 3 DAYS OPTHALMIC), (OU Q 4 HOURS X 2 DAYS OPTHALMIC)
     Route: 047
  3. TOBRADEX [Suspect]
     Indication: PHOTOREFRACTIVE KERATECTOMY
     Dosage: (OU Q 2 HOURS OPTHALMIC)
     Route: 047
  4. VIGAMOX [Suspect]
     Indication: PHOTOREFRACTIVE KERATECTOMY
     Dosage: (OU Q 2 HOURS OPTHALMIC)
     Route: 047

REACTIONS (6)
  - BACILLUS INFECTION [None]
  - CULTURE POSITIVE [None]
  - LABORATORY TEST INTERFERENCE [None]
  - PHOTOPHOBIA [None]
  - STAPHYLOCOCCAL INFECTION [None]
  - ULCERATIVE KERATITIS [None]
